FAERS Safety Report 8482488-2 (Version None)
Quarter: 2012Q3

REPORT INFORMATION
  Report Type: 
  Country: None (occurrence: None)
  Receive Date: 20120702
  Receipt Date: 20120625
  Transmission Date: 20120928
  Serious: Yes (Other)
  Sender: FDA-Public Use
  Company Number: CHPA2012US013220

PATIENT
  Age: 78 Year
  Sex: Female

DRUGS (5)
  1. PREDNISONE [Concomitant]
     Dosage: 5 MG
  2. PREVACID 24 HR [Suspect]
     Indication: GASTROINTESTINAL DISORDER
     Dosage: 15 MG, QD
     Route: 048
     Dates: end: 20120612
  3. PREDNISONE [Concomitant]
     Dosage: 2.5 MG
  4. ASPIRIN [Concomitant]
     Dosage: 385 MG A DAY
     Route: 048
     Dates: start: 20031201
  5. DRUG THERAPY NOS [Concomitant]
     Dosage: UNK
     Dates: start: 20120601, end: 20120601

REACTIONS (8)
  - CARDIAC DISORDER [None]
  - DISEASE RECURRENCE [None]
  - CONCOMITANT DISEASE AGGRAVATED [None]
  - RESPIRATORY DISORDER [None]
  - OFF LABEL USE [None]
  - ARTERIAL DISORDER [None]
  - THERAPEUTIC RESPONSE UNEXPECTED [None]
  - GAIT DISTURBANCE [None]
